FAERS Safety Report 5453005-6 (Version None)
Quarter: 2007Q3

REPORT INFORMATION
  Report Type: 
  Country: None (occurrence: None)
  Receive Date: 20070914
  Receipt Date: 20070911
  Transmission Date: 20080115
  Serious: Yes (Other)
  Sender: FDA-Public Use
  Company Number: IT-ROXANE LABORATORIES, INC-2007-BP-20804RO

PATIENT
  Age: 52 Year
  Sex: Male

DRUGS (2)
  1. AZATHIOPRINE [Suspect]
     Indication: COLITIS ULCERATIVE
     Dates: start: 20030101
  2. AZATHIOPRINE [Suspect]
     Dates: start: 20051001, end: 20051001

REACTIONS (6)
  - ATRIAL FIBRILLATION [None]
  - MALAISE [None]
  - NAUSEA [None]
  - PALPITATIONS [None]
  - SYNCOPE [None]
  - VOMITING [None]
